FAERS Safety Report 5639463-2 (Version None)
Quarter: 2008Q1

REPORT INFORMATION
  Report Type: 
  Country: None (occurrence: None)
  Receive Date: 20080226
  Receipt Date: 20080214
  Transmission Date: 20080703
  Serious: Yes (Other)
  Sender: FDA-Public Use
  Company Number: US-PFIZER INC-2008015249

PATIENT
  Sex: Male
  Weight: 59 kg

DRUGS (4)
  1. NEURONTIN [Suspect]
     Indication: NEUROPATHY PERIPHERAL
     Route: 048
  2. INTERFERON [Concomitant]
  3. OXYBUTYNIN CHLORIDE [Concomitant]
  4. XANAX [Concomitant]

REACTIONS (2)
  - HALLUCINATION [None]
  - MENTAL DISORDER [None]
